FAERS Safety Report 5777271-2 (Version None)
Quarter: 2008Q2

REPORT INFORMATION
  Report Type: 
  Country: None (occurrence: None)
  Receive Date: 20080616
  Receipt Date: 20080603
  Transmission Date: 20081010
  Serious: Yes (Hospitalization)
  Sender: FDA-Public Use
  Company Number: 2008AL006278

PATIENT
  Age: 78 Year
  Sex: Male
  Weight: 104.7809 kg

DRUGS (1)
  1. DIGOXIN [Suspect]
     Indication: CARDIAC DISORDER
     Dosage: 0.25 MG, DAILY; PO
     Route: 048
     Dates: start: 20071002, end: 20071007

REACTIONS (4)
  - DIZZINESS [None]
  - MALAISE [None]
  - ORAL INTAKE REDUCED [None]
  - VOMITING [None]
